FAERS Safety Report 6133848-6 (Version None)
Quarter: 2009Q1

REPORT INFORMATION
  Report Type: 
  Country: None (occurrence: None)
  Receive Date: 20090326
  Receipt Date: 20090313
  Transmission Date: 20090719
  Serious: Yes (Hospitalization)
  Sender: FDA-Public Use
  Company Number: IT-PFIZER INC-2007032593

PATIENT

DRUGS (2)
  1. SUNITINIB MALATE [Suspect]
     Indication: METASTATIC RENAL CELL CARCINOMA
     Dosage: 50 MG, DAILY, CYCLIC
     Route: 048
     Dates: start: 20060623, end: 20061022
  2. SUNITINIB MALATE [Suspect]
     Dosage: 37.5 MG, DAILY, CYCLIC
     Route: 048
     Dates: start: 20061110, end: 20070415

REACTIONS (2)
  - PNEUMONITIS [None]
  - RESPIRATORY FAILURE [None]
